FAERS Safety Report 6839653-7 (Version None)
Quarter: 2010Q3

REPORT INFORMATION
  Report Type: 
  Country: None (occurrence: None)
  Receive Date: 20100708
  Receipt Date: 20100608
  Transmission Date: 20110219
  Serious: Yes (Hospitalization)
  Sender: FDA-Public Use
  Company Number: 2010001766

PATIENT
  Age: 64 Year
  Sex: Male

DRUGS (27)
  1. ERLOTINIB HYDROCHLORIDE [Suspect]
     Indication: HEPATIC NEOPLASM MALIGNANT
     Dosage: 150 MG, QD, ORAL, 150 MG, QD), ORAL, (150 MG, QD), ORAL, (0. MG), ORAL, 100 MG, QD), ORAL, (100
     Route: 048
     Dates: start: 20091223, end: 20100111
  2. ERLOTINIB HYDROCHLORIDE [Suspect]
     Indication: HEPATIC NEOPLASM MALIGNANT
     Dosage: 150 MG, QD, ORAL, 150 MG, QD), ORAL, (150 MG, QD), ORAL, (0. MG), ORAL, 100 MG, QD), ORAL, (100
     Route: 048
     Dates: start: 20100112, end: 20100201
  3. ERLOTINIB HYDROCHLORIDE [Suspect]
     Indication: HEPATIC NEOPLASM MALIGNANT
     Dosage: 150 MG, QD, ORAL, 150 MG, QD), ORAL, (150 MG, QD), ORAL, (0. MG), ORAL, 100 MG, QD), ORAL, (100
     Route: 048
     Dates: start: 20100202, end: 20100218
  4. ERLOTINIB HYDROCHLORIDE [Suspect]
     Indication: HEPATIC NEOPLASM MALIGNANT
     Dosage: 150 MG, QD, ORAL, 150 MG, QD), ORAL, (150 MG, QD), ORAL, (0. MG), ORAL, 100 MG, QD), ORAL, (100
     Route: 048
     Dates: start: 20100219, end: 20100305
  5. ERLOTINIB HYDROCHLORIDE [Suspect]
     Indication: HEPATIC NEOPLASM MALIGNANT
     Dosage: 150 MG, QD, ORAL, 150 MG, QD), ORAL, (150 MG, QD), ORAL, (0. MG), ORAL, 100 MG, QD), ORAL, (100
     Route: 048
     Dates: start: 20100306, end: 20100406
  6. ERLOTINIB HYDROCHLORIDE [Suspect]
     Indication: HEPATIC NEOPLASM MALIGNANT
     Dosage: 150 MG, QD, ORAL, 150 MG, QD), ORAL, (150 MG, QD), ORAL, (0. MG), ORAL, 100 MG, QD), ORAL, (100
     Route: 048
     Dates: start: 20100407, end: 20100427
  7. ERLOTINIB HYDROCHLORIDE [Suspect]
     Indication: HEPATIC NEOPLASM MALIGNANT
     Dosage: 150 MG, QD, ORAL, 150 MG, QD), ORAL, (150 MG, QD), ORAL, (0. MG), ORAL, 100 MG, QD), ORAL, (100
     Route: 048
     Dates: start: 20100428, end: 20100428
  8. SORAFENIB [Suspect]
     Indication: HEPATIC NEOPLASM MALIGNANT
     Dosage: SEE IMAGE
     Route: 048
     Dates: start: 20100306, end: 20100315
  9. SORAFENIB [Suspect]
     Indication: HEPATIC NEOPLASM MALIGNANT
     Dosage: SEE IMAGE
     Route: 048
     Dates: start: 20100316, end: 20100316
  10. SORAFENIB [Suspect]
     Indication: HEPATIC NEOPLASM MALIGNANT
     Dosage: SEE IMAGE
     Route: 048
     Dates: start: 20100317, end: 20100325
  11. SORAFENIB [Suspect]
     Indication: HEPATIC NEOPLASM MALIGNANT
     Dosage: SEE IMAGE
     Route: 048
     Dates: start: 20100326, end: 20100405
  12. SORAFENIB [Suspect]
     Indication: HEPATIC NEOPLASM MALIGNANT
     Dosage: SEE IMAGE
     Route: 048
     Dates: start: 20100406, end: 20100426
  13. SORAFENIB [Suspect]
     Indication: HEPATIC NEOPLASM MALIGNANT
     Dosage: SEE IMAGE
     Route: 048
     Dates: start: 20100427, end: 20100428
  14. BARACLUDE [Concomitant]
  15. AVAPRO [Concomitant]
  16. FLOMAX (MORNIFLUMATE) [Concomitant]
  17. AMOXICILLIN [Concomitant]
  18. ACETAMINOPHEN AND CODEINE PHOSPHATE [Concomitant]
  19. METRONIDAZOLE [Concomitant]
  20. TEMAZEPAM [Concomitant]
  21. NEXIUM [Concomitant]
  22. NIZATIDINE [Concomitant]
  23. SIMVASTATIN [Concomitant]
  24. LASIX [Concomitant]
  25. SPIRONOLACTONE [Concomitant]
  26. HYDROZOLE CREAM [Concomitant]
  27. ENDONE (OXYCODONE HYDROCHLORIDE) [Concomitant]

REACTIONS (1)
  - OESOPHAGEAL VARICES HAEMORRHAGE [None]
